FAERS Safety Report 9651451 (Version 2)
Quarter: 2013Q4

REPORT INFORMATION
  Report Type: Spontaneous
  Country: BE (occurrence: BE)
  Receive Date: 20131029
  Receipt Date: 20131112
  Transmission Date: 20140711
  Serious: Yes (Hospitalization)
  Sender: FDA-Public Use
  Company Number: BE-AMGEN-BELSP2013076218

PATIENT
  Age: 49 Year
  Sex: Female
  Weight: 72 kg

DRUGS (2)
  1. ENBREL [Suspect]
     Indication: RHEUMATOID ARTHRITIS
     Dosage: 50 MG, WEEKLY
     Route: 058
     Dates: start: 20130730
  2. ARAVA [Concomitant]
     Dosage: 20 MG, 1X/DAY
     Route: 048
     Dates: start: 201306

REACTIONS (3)
  - Influenza like illness [Recovered/Resolved]
  - Uterine haemorrhage [Recovered/Resolved]
  - Nasopharyngitis [Recovered/Resolved]
